FAERS Safety Report 5624160-X (Version None)
Quarter: 2008Q1

REPORT INFORMATION
  Report Type: 
  Country: None (occurrence: None)
  Receive Date: 20080213
  Receipt Date: 20080205
  Transmission Date: 20080703
  Serious: Yes (Other)
  Sender: FDA-Public Use
  Company Number: PHBS2008ES01878

PATIENT
  Age: 83 Year
  Sex: Female

DRUGS (3)
  1. CLOPIDOGREL [Concomitant]
  2. ENALAPRIL MALEATE [Suspect]
     Indication: HYPERTENSION
     Dosage: 20 MG/DAY
  3. HYDROCHLOROTHIAZIDE [Suspect]
     Indication: HYPERTENSION
     Dosage: 12.5 MG/DAY

REACTIONS (5)
  - ANGIOEDEMA [None]
  - DYSPNOEA [None]
  - LARYNGEAL OEDEMA [None]
  - PHARYNGOLARYNGEAL DISCOMFORT [None]
  - TONGUE OEDEMA [None]
